FAERS Safety Report 23539370 (Version 1)
Quarter: 2024Q1

REPORT INFORMATION
  Report Type: Spontaneous
  Country: US (occurrence: US)
  Receive Date: 20240219
  Receipt Date: 20240219
  Transmission Date: 20240410
  Serious: Yes (Other)
  Sender: FDA-Public Use
  Company Number: US-002147023-NVSC2024US031242

PATIENT

DRUGS (3)
  1. GLEEVEC [Suspect]
     Active Substance: IMATINIB MESYLATE
     Indication: Product used for unknown indication
     Route: 065
  2. OMEPRAZOLE [Suspect]
     Active Substance: OMEPRAZOLE
     Indication: Product used for unknown indication
     Dosage: 40 MG, BID
     Route: 065
  3. OMEPRAZOLE [Suspect]
     Active Substance: OMEPRAZOLE
     Dosage: 20 MG, BID
     Route: 065

REACTIONS (8)
  - Barrett^s oesophagus [Unknown]
  - Polyp [Unknown]
  - Constipation [Unknown]
  - Malabsorption [Unknown]
  - Diarrhoea [Unknown]
  - Fatigue [Unknown]
  - Asthenia [Unknown]
  - Drug ineffective [Unknown]
